FAERS Safety Report 19144990 (Version 1)
Quarter: 2021Q2

REPORT INFORMATION
  Report Type: Spontaneous
  Country: US (occurrence: US)
  Receive Date: 20210416
  Receipt Date: 20210416
  Transmission Date: 20210717
  Serious: No
  Sender: FDA-Public Use
  Company Number: US-SA-2021SA125366

PATIENT
  Sex: Female

DRUGS (1)
  1. AUBAGIO [Suspect]
     Active Substance: TERIFLUNOMIDE
     Indication: MULTIPLE SCLEROSIS
     Dosage: 7 MG
     Route: 048
     Dates: start: 2018

REACTIONS (5)
  - Adverse drug reaction [Unknown]
  - Headache [Unknown]
  - Weight decreased [Unknown]
  - Paraesthesia [Unknown]
  - Raynaud^s phenomenon [Unknown]
